FAERS Safety Report 4307579-9 (Version None)
Quarter: 2004Q1

REPORT INFORMATION
  Report Type: 
  Country: None (occurrence: None)
  Receive Date: 20040225
  Receipt Date: 20031223
  Transmission Date: 20041129
  Serious: Yes (Hospitalization)
  Sender: FDA-Public Use
  Company Number: WAES 0312USA02412

PATIENT
  Age: 69 Year
  Sex: Male

DRUGS (11)
  1. ZOCOR [Suspect]
     Indication: HYPERCHOLESTEROLAEMIA
     Dosage: 80 MG/DAILY/PO
     Route: 048
     Dates: start: 20020601, end: 20031220
  2. COUMADIN [Concomitant]
  3. GLUCOPHAGE [Concomitant]
  4. GLUCOTROL XL [Concomitant]
  5. LANOXIN [Concomitant]
  6. LASIX [Concomitant]
  7. VASOTEC [Concomitant]
  8. ALLOPURINOL [Concomitant]
  9. FISH OIL (UNSPECIFIED) [Concomitant]
  10. LINSEED OIL [Concomitant]
  11. POTASSIUM (UNSPECIFIED) [Concomitant]

REACTIONS (2)
  - INFLUENZA [None]
  - RHABDOMYOLYSIS [None]
